FAERS Safety Report 8749373 (Version 2)
Quarter: 2012Q4

REPORT INFORMATION
  Report Type: Spontaneous
  Country: US (occurrence: None)
  Receive Date: 20120806
  Receipt Date: 20120814
  Transmission Date: 20130627
  Serious: Yes (Other)
  Sender: FDA-Public Use
  Company Number: 2012SA052802

PATIENT
  Age: 64 Year
  Sex: Female
  Weight: 68.18 kg

DRUGS (1)
  1. CAPSAICIN [Suspect]
     Dates: start: 20120719, end: 20120719

REACTIONS (5)
  - Application site warmth [None]
  - Application site pain [None]
  - Insomnia [None]
  - Skin burning sensation [None]
  - Pain [None]
